FAERS Safety Report 17221971 (Version 1)
Quarter: 2020Q1

REPORT INFORMATION
  Report Type: Spontaneous
  Country: US (occurrence: US)
  Receive Date: 20200101
  Receipt Date: 20200101
  Transmission Date: 20200409
  Serious: No
  Sender: FDA-Public Use
  Company Number: US-AMGEN-USASP2019213479

PATIENT

DRUGS (1)
  1. REPATHA [Suspect]
     Active Substance: EVOLOCUMAB
     Indication: PRODUCT USED FOR UNKNOWN INDICATION
     Dosage: UNK
     Route: 065

REACTIONS (12)
  - Back pain [Unknown]
  - Urinary tract infection [Unknown]
  - Injection site erythema [Unknown]
  - Dizziness [Unknown]
  - Diarrhoea [Unknown]
  - Injection site pain [Unknown]
  - Sinusitis [Unknown]
  - Hypertension [Unknown]
  - Injection site bruising [Unknown]
  - Hypersensitivity [Unknown]
  - Upper respiratory tract infection [Unknown]
  - Influenza [Unknown]
